FAERS Safety Report 13336379 (Version 1)
Quarter: 2017Q1

REPORT INFORMATION
  Report Type: Spontaneous
  Country: US (occurrence: US)
  Receive Date: 20170314
  Receipt Date: 20170314
  Transmission Date: 20170428
  Serious: No
  Sender: FDA-Public Use
  Company Number: US-JAZZ-2016-US-021871

PATIENT
  Sex: Female

DRUGS (37)
  1. XYREM [Suspect]
     Active Substance: SODIUM OXYBATE
     Dosage: DOSE ADJUSTMENT
     Route: 048
     Dates: start: 201201, end: 2014
  2. LISINOPRIL. [Concomitant]
     Active Substance: LISINOPRIL
  3. RANITIDINE. [Concomitant]
     Active Substance: RANITIDINE
  4. MORPHINE SULF [Concomitant]
     Active Substance: MORPHINE SULFATE
  5. LYRICA [Concomitant]
     Active Substance: PREGABALIN
  6. IBUPROFEN. [Concomitant]
     Active Substance: IBUPROFEN
  7. LOSARTAN POTASSIUM. [Concomitant]
     Active Substance: LOSARTAN POTASSIUM
  8. LIDODERM [Concomitant]
     Active Substance: LIDOCAINE
  9. ZYFLO [Concomitant]
     Active Substance: ZILEUTON
  10. OMEPRAZOLE. [Concomitant]
     Active Substance: OMEPRAZOLE
  11. XYREM [Suspect]
     Active Substance: SODIUM OXYBATE
     Dosage: 3 G, BID
     Route: 048
     Dates: start: 201409
  12. SPIRIVA [Concomitant]
     Active Substance: TIOTROPIUM BROMIDE MONOHYDRATE
  13. VITAMIN D                          /00107901/ [Concomitant]
     Active Substance: ERGOCALCIFEROL
  14. XYREM [Suspect]
     Active Substance: SODIUM OXYBATE
     Indication: NARCOLEPSY
     Dosage: 4.5 G, BID
     Route: 048
     Dates: start: 200904, end: 2011
  15. ADDERALL [Concomitant]
     Active Substance: AMPHETAMINE ASPARTATE\AMPHETAMINE SULFATE\DEXTROAMPHETAMINE SACCHARATE\DEXTROAMPHETAMINE SULFATE
  16. ADVAIR HFA [Concomitant]
     Active Substance: FLUTICASONE PROPIONATE\SALMETEROL XINAFOATE
  17. ARTHROTEC [Concomitant]
     Active Substance: DICLOFENAC SODIUM\MISOPROSTOL
  18. HCTZ [Concomitant]
     Active Substance: HYDROCHLOROTHIAZIDE
  19. VALACYCLOVIR HCL [Concomitant]
     Active Substance: VALACYCLOVIR HYDROCHLORIDE
  20. VITAMIN B12 [Concomitant]
     Active Substance: CYANOCOBALAMIN
  21. TAXOTERE [Concomitant]
     Active Substance: DOCETAXEL
  22. LORTAB [Concomitant]
     Active Substance: ACETAMINOPHEN\HYDROCODONE BITARTRATE
  23. PROCHLORPERAZINE. [Concomitant]
     Active Substance: PROCHLORPERAZINE
  24. FISH OIL [Concomitant]
     Active Substance: FISH OIL
  25. OXYCONTIN [Concomitant]
     Active Substance: OXYCODONE HYDROCHLORIDE
  26. ZITROMAX [Concomitant]
     Active Substance: AZITHROMYCIN
  27. PROVENTIL [Concomitant]
     Active Substance: ALBUTEROL
  28. TAMOXIFEN [Concomitant]
     Active Substance: TAMOXIFEN
  29. HERCEPTIN [Concomitant]
     Active Substance: TRASTUZUMAB
  30. ALLEGRA ALLERGY [Concomitant]
     Active Substance: FEXOFENADINE HYDROCHLORIDE
  31. ALBUTEROL                          /00139501/ [Concomitant]
     Active Substance: ALBUTEROL
  32. ALVESCO [Concomitant]
     Active Substance: CICLESONIDE
  33. ESTRACE [Concomitant]
     Active Substance: ESTRADIOL
  34. OMNARIS [Concomitant]
     Active Substance: CICLESONIDE
  35. IPRATROPIUM [Concomitant]
     Active Substance: IPRATROPIUM
  36. NITROGLYCERIN. [Concomitant]
     Active Substance: NITROGLYCERIN
  37. COMPAZINE                          /00013302/ [Concomitant]
     Active Substance: PROCHLORPERAZINE EDISYLATE

REACTIONS (2)
  - Pain [Unknown]
  - Wound [Unknown]
